FAERS Safety Report 6416767-7 (Version None)
Quarter: 2009Q4

REPORT INFORMATION
  Report Type: 
  Country: None (occurrence: None)
  Receive Date: 20091027
  Receipt Date: 20091020
  Transmission Date: 20100525
  Serious: Yes (Death, Other)
  Sender: FDA-Public Use
  Company Number: IT-ABBOTT-09P-083-0604238-01

PATIENT
  Sex: Female

DRUGS (5)
  1. HUMIRA [Suspect]
     Indication: RHEUMATOID ARTHRITIS
     Route: 058
     Dates: start: 20041013, end: 20070622
  2. COMMERCIAL HUMIRA [Concomitant]
     Indication: RHEUMATOID ARTHRITIS
     Route: 058
     Dates: start: 20040818
  3. METHOTREXATE [Concomitant]
     Indication: RHEUMATOID ARTHRITIS
     Dates: start: 20050325
  4. CORDARONE [Concomitant]
     Indication: ARRHYTHMIA
     Dates: start: 20071001
  5. LENTOKALIUM [Concomitant]
     Indication: BLOOD POTASSIUM DECREASED
     Dates: start: 20071001

REACTIONS (2)
  - BRAIN NEOPLASM MALIGNANT [None]
  - DEATH [None]
